FAERS Safety Report 10543460 (Version 1)
Quarter: 2014Q4

REPORT INFORMATION
  Report Type: Spontaneous
  Country: US (occurrence: None)
  Receive Date: 20141010
  Receipt Date: 20141010
  Transmission Date: 20150529
  Serious: No
  Sender: FDA-Public Use
  Company Number: 163-POMAL-14080815

PATIENT
  Age: 45 Year
  Sex: Female
  Weight: 56.7 kg

DRUGS (7)
  1. CEFTIN (CEFUROXIME AXETIL) [Concomitant]
  2. PROBIOTIC (BIFIDOBACTERIUM LACTIS) [Concomitant]
  3. DEXAMETHASONE (DEXAMETHASONE) (UNKNOWN) [Suspect]
     Active Substance: DEXAMETHASONE
     Indication: PRODUCT USED FOR UNKNOWN INDICATION
  4. MIRALAX (MACROGOL) [Concomitant]
  5. VELCADE [Concomitant]
     Active Substance: BORTEZOMIB
  6. POMALYST [Suspect]
     Active Substance: POMALIDOMIDE
     Indication: PLASMA CELL MYELOMA
     Dosage: 21 IN 28 D
     Route: 048
     Dates: start: 20140411
  7. SYNTHROID [Concomitant]
     Active Substance: LEVOTHYROXINE SODIUM

REACTIONS (1)
  - Adverse drug reaction [None]

NARRATIVE: CASE EVENT DATE: 2014
